FAERS Safety Report 21345883 (Version 2)
Quarter: 2023Q1

REPORT INFORMATION
  Report Type: Spontaneous
  Country: US (occurrence: US)
  Receive Date: 20220916
  Receipt Date: 20230202
  Transmission Date: 20230418
  Serious: Yes (Hospitalization, Other)
  Sender: FDA-Public Use
  Company Number: US-BAYER-2022A120518

PATIENT
  Sex: Male
  Weight: 90.703 kg

DRUGS (6)
  1. REGORAFENIB [Suspect]
     Active Substance: REGORAFENIB
     Indication: Product used for unknown indication
     Dosage: UNK
  2. LONSURF [Suspect]
     Active Substance: TIPIRACIL HYDROCHLORIDE\TRIFLURIDINE
     Indication: Colon cancer
     Dosage: 60 MG, BID (ON DAYS 1-5 AND 8-12 OF A 28 DAY CYCLE)
     Route: 048
     Dates: start: 20211025
  3. LONSURF [Suspect]
     Active Substance: TIPIRACIL HYDROCHLORIDE\TRIFLURIDINE
     Indication: Colorectal cancer
  4. XELODA [Concomitant]
     Active Substance: CAPECITABINE
     Dosage: UNK
  5. LACTOSE [Concomitant]
     Active Substance: LACTOSE
     Dosage: UNK
  6. MINERALS\VITAMINS [Concomitant]
     Active Substance: MINERALS\VITAMINS
     Dosage: UNK

REACTIONS (10)
  - Cell death [Unknown]
  - Haematotoxicity [None]
  - Cytopenia [None]
  - General physical health deterioration [None]
  - Gait inability [Unknown]
  - Full blood count abnormal [Unknown]
  - Wheelchair user [None]
  - Drug ineffective [Unknown]
  - Pain [Unknown]
  - General physical health deterioration [Unknown]
